FAERS Safety Report 5794646-6 (Version None)
Quarter: 2008Q2

REPORT INFORMATION
  Report Type: 
  Country: None (occurrence: None)
  Receive Date: 20080626
  Receipt Date: 20080619
  Transmission Date: 20081010
  Serious: Yes (Hospitalization, Other)
  Sender: FDA-Public Use
  Company Number: 2007-01062

PATIENT
  Age: 61 Year

DRUGS (7)
  1. VELCADE [Suspect]
     Indication: MULTIPLE MYELOMA
  2. DOXORUBICIN HCL [Suspect]
     Indication: MULTIPLE MYELOMA
  3. DEXAMETHASONE TAB [Suspect]
     Indication: MULTIPLE MYELOMA
  4. FENTANYL [Concomitant]
  5. MOVICOLON (SODIUM BICARBONATE, SODIUM CHLORIDE, MACROGOL, POTASSIUM CH [Concomitant]
  6. ATENOLOL [Concomitant]
  7. METOCLOPRAMIDE [Concomitant]

REACTIONS (4)
  - AFFECTIVE DISORDER [None]
  - APATHY [None]
  - BLOOD CREATININE INCREASED [None]
  - ORAL INTAKE REDUCED [None]
